FAERS Safety Report 12098425 (Version 2)
Quarter: 2016Q2

REPORT INFORMATION
  Report Type: Spontaneous
  Country: US (occurrence: US)
  Receive Date: 20160222
  Receipt Date: 20160428
  Transmission Date: 20160815
  Serious: No
  Sender: FDA-Public Use
  Company Number: US-TEVA-630924ACC

PATIENT
  Sex: Female

DRUGS (1)
  1. PARAGARD T 380A [Suspect]
     Active Substance: COPPER
     Indication: CONTRACEPTION
     Dates: start: 200503, end: 20160121

REACTIONS (4)
  - Device breakage [Unknown]
  - Device use issue [Unknown]
  - Complication associated with device [Unknown]
  - Expired device used [Unknown]

NARRATIVE: CASE EVENT DATE: 20160121
